FAERS Safety Report 9133218 (Version 1)
Quarter: 2013Q1

REPORT INFORMATION
  Report Type: Spontaneous
  Country: JP (occurrence: JP)
  Receive Date: 20130301
  Receipt Date: 20130301
  Transmission Date: 20140127
  Serious: Yes (Hospitalization)
  Sender: FDA-Public Use
  Company Number: JP-ASTRAZENECA-2013SE12364

PATIENT
  Age: 54 Year
  Sex: Male
  Weight: 48 kg

DRUGS (4)
  1. DIPRIVAN [Suspect]
     Indication: SEDATION
     Dosage: DOSE UNKNOWN
     Route: 042
  2. MIDAZOLAM [Concomitant]
     Indication: SEDATION
     Dosage: DOSE UNKNOWN
     Route: 065
  3. FENTANYL [Concomitant]
     Indication: SEDATION
     Dosage: DOSE UNKNOWN
     Route: 008
  4. POPSCAINE [Concomitant]
     Indication: POSTOPERATIVE ANALGESIA
     Dosage: DOSE UNKNOWN
     Route: 065

REACTIONS (5)
  - Pleural effusion [Unknown]
  - Pneumonia [Unknown]
  - Blood pressure decreased [Unknown]
  - Oliguria [Unknown]
  - Atelectasis [Unknown]
